FAERS Safety Report 9892299 (Version 2)
Quarter: 2014Q1

REPORT INFORMATION
  Report Type: Spontaneous
  Country: US (occurrence: US)
  Receive Date: 20140212
  Receipt Date: 20140212
  Transmission Date: 20141002
  Serious: No
  Sender: FDA-Public Use
  Company Number: US-MALLINCKRODT-T201305214

PATIENT
  Age: 41 Year
  Sex: Male
  Weight: 74.83 kg

DRUGS (3)
  1. FENTANYL TRANSDERMAL SYSTEM [Suspect]
     Indication: BACK PAIN
     Dosage: 50MCG/HR, Q 48 HRS
     Route: 062
     Dates: start: 20131203
  2. FLEXERIL                           /00428402/ [Concomitant]
     Indication: MUSCLE TIGHTNESS
     Dosage: 10 MG, UNK
     Route: 048
  3. NORCO [Concomitant]
     Indication: BREAKTHROUGH PAIN
     Dosage: 10/325 MG, Q 4-6 HRS, PRN
     Route: 048

REACTIONS (4)
  - Extra dose administered [Unknown]
  - Insomnia [Unknown]
  - Muscle spasms [Unknown]
  - Drug ineffective [Unknown]
